FAERS Safety Report 6310058-0 (Version None)
Quarter: 2009Q3

REPORT INFORMATION
  Report Type: 
  Country: None (occurrence: None)
  Receive Date: 20090811
  Receipt Date: 20090729
  Transmission Date: 20100115
  Serious: Yes (Other)
  Sender: FDA-Public Use
  Company Number: 230667K09USA

PATIENT
  Age: 44 Year
  Sex: Female
  Weight: 140 kg

DRUGS (4)
  1. REBIF [Suspect]
     Indication: MULTIPLE SCLEROSIS
     Dosage: 44 MCG, 3 IN 1 WEEKS, SUBCUTANEOUS
     Route: 058
     Dates: start: 20030303, end: 20090219
  2. BENAZEPRIL HCL AND HYDROCHLOROTHIAZIDE [Suspect]
     Indication: HYPERTENSION
     Dosage: 1 IN 1 DAYS
  3. SYNTHROID [Concomitant]
  4. ESTRADIOL (ESTRADIOL VALERATE) [Concomitant]

REACTIONS (10)
  - ARTHRALGIA [None]
  - CHILLS [None]
  - CONDITION AGGRAVATED [None]
  - DIABETES MELLITUS [None]
  - INJECTION SITE JOINT REDNESS [None]
  - INJECTION SITE PAIN [None]
  - MULTIPLE SCLEROSIS [None]
  - MUSCULOSKELETAL PAIN [None]
  - VISION BLURRED [None]
  - WEIGHT DECREASED [None]
